FAERS Safety Report 6244468-7 (Version None)
Quarter: 2009Q2

REPORT INFORMATION
  Report Type: 
  Country: None (occurrence: None)
  Receive Date: 20090625
  Receipt Date: 20090616
  Transmission Date: 20091009
  Serious: Yes (Hospitalization, Other)
  Sender: FDA-Public Use
  Company Number: AU-ASTRAZENECA-2009SE02807

PATIENT
  Age: 0 Day
  Sex: Male
  Weight: 4.5 kg

DRUGS (4)
  1. AZD5077 [Suspect]
     Indication: PSYCHOTIC DISORDER
     Dates: start: 20080201, end: 20090407
  2. BLACKMORES PREGNANCY [Concomitant]
     Indication: MULTI-VITAMIN DEFICIENCY
  3. BREAST FEEDING FORMULA [Concomitant]
     Indication: MULTI-VITAMIN DEFICIENCY
  4. FOLAT [Concomitant]
     Indication: PROPHYLAXIS OF NEURAL TUBE DEFECT

REACTIONS (2)
  - NEONATAL RESPIRATORY DISTRESS SYNDROME [None]
  - PREMATURE BABY [None]
